FAERS Safety Report 6382801-6 (Version None)
Quarter: 2009Q3

REPORT INFORMATION
  Report Type: 
  Country: None (occurrence: None)
  Receive Date: 20090930
  Receipt Date: 20090918
  Transmission Date: 20100115
  Serious: No
  Sender: FDA-Public Use
  Company Number: US-B.I. PHARMACEUTICALS,INC./RIDGEFIELD-2009-BP-11079BP

PATIENT
  Age: 47 Year
  Sex: Male

DRUGS (3)
  1. FLOMAX [Suspect]
     Indication: URINARY TRACT INFECTION
     Dosage: 0.4 MG
     Route: 048
     Dates: start: 20090915
  2. FLOMAX [Suspect]
     Indication: PROSTATIC DISORDER
  3. CIPRO [Concomitant]
     Indication: URINARY TRACT INFECTION
     Route: 048
     Dates: start: 20090915

REACTIONS (1)
  - EJACULATION DISORDER [None]
